FAERS Safety Report 8106159-7 (Version None)
Quarter: 2012Q1

REPORT INFORMATION
  Report Type: 
  Country: None (occurrence: None)
  Receive Date: 20120130
  Receipt Date: 20120116
  Transmission Date: 20120608
  Serious: Yes (Death)
  Sender: FDA-Public Use
  Company Number: 2012POI058000024

PATIENT
  Age: 44 Year
  Sex: Female

DRUGS (5)
  1. CLONIDINE [Suspect]
     Dates: end: 20100101
  2. LITHIUM CARBONATE [Suspect]
     Dates: end: 20100101
  3. OXYCODONE HCL [Suspect]
     Dates: end: 20100101
  4. ACETAMINOPHEN AND HYDROCODONE BITARTRATE [Suspect]
     Dates: end: 20100101
  5. BUTALBITAL ACETAMINOPHEN AND CAFFEINE [Suspect]
     Dates: end: 20100101

REACTIONS (1)
  - COMPLETED SUICIDE [None]
